FAERS Safety Report 8336907-2 (Version None)
Quarter: 2012Q2

REPORT INFORMATION
  Report Type: 
  Country: None (occurrence: None)
  Receive Date: 20120504
  Receipt Date: 20120502
  Transmission Date: 20120825
  Serious: Yes (Death, Other)
  Sender: FDA-Public Use
  Company Number: PHHY2012GB037247

PATIENT
  Age: 57 Year
  Sex: Male
  Weight: 85 kg

DRUGS (7)
  1. ZOPICLONE [Concomitant]
     Indication: INSOMNIA
     Dosage: 11.25 MG, BID
     Dates: start: 20110101
  2. DOMPERIDONE [Concomitant]
     Indication: VOMITING
     Dosage: UNK
     Route: 054
     Dates: start: 20110801
  3. OXYCODONE HCL [Concomitant]
     Indication: PAIN MANAGEMENT
     Dosage: UNK
     Route: 048
     Dates: start: 20110801
  4. ONDANSETRON [Suspect]
     Indication: VOMITING
     Dosage: 8 MG, UNK
     Route: 030
     Dates: start: 20110917
  5. CYCLIZINE [Concomitant]
     Indication: VOMITING
     Dosage: 50 MG, TID
     Route: 058
     Dates: start: 20110801
  6. DOMPERIDONE [Concomitant]
     Route: 048
  7. FENTANYL CITRATE [Concomitant]
     Indication: PAIN MANAGEMENT
     Dosage: 175 UG, UNK
     Dates: start: 20110501

REACTIONS (8)
  - OESOPHAGEAL ADENOCARCINOMA [None]
  - BRADYCARDIA [None]
  - TACHYCARDIA [None]
  - FEELING HOT [None]
  - CIRCULATORY COLLAPSE [None]
  - PULSE ABSENT [None]
  - HAEMATEMESIS [None]
  - NECK PAIN [None]
